FAERS Safety Report 21958145 (Version 1)
Quarter: 2023Q1

REPORT INFORMATION
  Report Type: Spontaneous
  Country: US (occurrence: US)
  Receive Date: 20230206
  Receipt Date: 20230206
  Transmission Date: 20230417
  Serious: No
  Sender: FDA-Public Use
  Company Number: US-PFIZER INC-PV202200086307

PATIENT
  Age: 83 Year
  Sex: Female

DRUGS (2)
  1. XELJANZ XR [Suspect]
     Active Substance: TOFACITINIB CITRATE
     Indication: Pemphigoid
     Dosage: 22 MG, (PILLS ON MONDAY, WEDNESDAY, AND FRIDAY)
     Route: 048
  2. XELJANZ XR [Suspect]
     Active Substance: TOFACITINIB CITRATE
     Indication: Rash
     Dosage: 11 MG, (OTHER DAYS OF THE WEEK)
     Route: 048

REACTIONS (2)
  - Off label use [Unknown]
  - Skin disorder [Unknown]
